FAERS Safety Report 17274366 (Version 1)
Quarter: 2020Q1

REPORT INFORMATION
  Report Type: Report from Study
  Country: US (occurrence: US)
  Receive Date: 20200115
  Receipt Date: 20200115
  Transmission Date: 20200409
  Serious: Yes (Hospitalization)
  Sender: FDA-Public Use
  Company Number: US-EISAI MEDICAL RESEARCH-EC-2019-060262

PATIENT
  Age: 75 Year
  Sex: Female
  Weight: 64.54 kg

DRUGS (14)
  1. LENVIMA [Suspect]
     Active Substance: LENVATINIB
     Route: 048
     Dates: start: 201909
  2. TOPROL XL [Concomitant]
     Active Substance: METOPROLOL SUCCINATE
  3. NORVASC [Concomitant]
     Active Substance: AMLODIPINE BESYLATE
  4. GLIPIZIDE. [Concomitant]
     Active Substance: GLIPIZIDE
  5. IMODIUM A-D [Concomitant]
     Active Substance: LOPERAMIDE HYDROCHLORIDE
  6. SYNTHROID [Concomitant]
     Active Substance: LEVOTHYROXINE SODIUM
  7. ISOSORBIDE. [Concomitant]
     Active Substance: ISOSORBIDE
  8. DOXAZOSIN [Concomitant]
     Active Substance: DOXAZOSIN MESYLATE
  9. CALCIUM + D [Concomitant]
     Active Substance: CALCIUM\VITAMIN D
  10. RANOLAZINE. [Concomitant]
     Active Substance: RANOLAZINE
  11. ASPIRIN 81 [Concomitant]
     Active Substance: ASPIRIN
  12. LENVIMA [Suspect]
     Active Substance: LENVATINIB
     Indication: HEPATOCELLULAR CARCINOMA
     Dosage: MISSED ONE DOSE
     Route: 048
     Dates: start: 20190726, end: 201909
  13. BRILINTA [Concomitant]
     Active Substance: TICAGRELOR
  14. VANCOMYCIN [Concomitant]
     Active Substance: VANCOMYCIN

REACTIONS (7)
  - Pain in extremity [Recovering/Resolving]
  - Erythema [Recovering/Resolving]
  - Blood pressure increased [Recovering/Resolving]
  - Asthenia [Recovered/Resolved]
  - Diarrhoea [Unknown]
  - Gastric disorder [Unknown]
  - Large intestine infection [Unknown]

NARRATIVE: CASE EVENT DATE: 2019
